FAERS Safety Report 6572346-2 (Version None)
Quarter: 2010Q1

REPORT INFORMATION
  Report Type: 
  Country: None (occurrence: None)
  Receive Date: 20100205
  Receipt Date: 20100125
  Transmission Date: 20100710
  Serious: Yes (Hospitalization)
  Sender: FDA-Public Use
  Company Number: FR-ELI_LILLY_AND_COMPANY-FR201001004930

PATIENT
  Sex: Male

DRUGS (6)
  1. GEMZAR [Suspect]
     Indication: PANCREATIC CARCINOMA
     Dosage: UNK, UNKNOWN
     Route: 042
     Dates: start: 20091214, end: 20091214
  2. NEXIUM [Concomitant]
     Dosage: 20 MG, UNKNOWN
     Route: 048
     Dates: start: 20091121, end: 20091221
  3. DOLIPRANE [Concomitant]
     Dosage: UNK, AS NEEDED
     Route: 048
     Dates: start: 20091121, end: 20091222
  4. TOPALGIC [Concomitant]
     Dosage: 50 MG, AS NEEDED
     Route: 048
     Dates: start: 20091121, end: 20091221
  5. SPASFON [Concomitant]
     Dosage: UNK, UNK
     Route: 048
     Dates: start: 20091121
  6. CREON [Concomitant]
     Dosage: 25000 U, UNK
     Route: 048
     Dates: start: 20091121

REACTIONS (2)
  - HEPATIC ENZYME INCREASED [None]
  - PHLEBITIS [None]
